FAERS Safety Report 5989110-5 (Version None)
Quarter: 2008Q4

REPORT INFORMATION
  Report Type: 
  Country: None (occurrence: None)
  Receive Date: 20081210
  Receipt Date: 20081201
  Transmission Date: 20090506
  Serious: Yes (Other)
  Sender: FDA-Public Use
  Company Number: US-JNJFOC-20081000468

PATIENT
  Sex: Male
  Weight: 122.47 kg

DRUGS (4)
  1. CONCERTA [Suspect]
  2. CONCERTA [Suspect]
     Indication: ATTENTION DEFICIT/HYPERACTIVITY DISORDER
  3. DIET PILL [Suspect]
     Indication: WEIGHT DECREASED
  4. AMBIEN [Concomitant]

REACTIONS (2)
  - FATIGUE [None]
  - HAEMORRHAGE INTRACRANIAL [None]
